FAERS Safety Report 22333889 (Version 1)
Quarter: 2023Q2

REPORT INFORMATION
  Report Type: Spontaneous
  Country: US (occurrence: US)
  Receive Date: 20230517
  Receipt Date: 20230517
  Transmission Date: 20230722
  Serious: No
  Sender: FDA-Public Use
  Company Number: US-AIMMUNE THERAPEUTICS, INC.-2022AIMT02824

PATIENT

DRUGS (3)
  1. PALFORZIA [Suspect]
     Active Substance: PEANUT
     Indication: Food allergy
     Dosage: IDE (0.5MG-6MG), ONCE
     Route: 048
     Dates: start: 20221208, end: 20221208
  2. PALFORZIA [Suspect]
     Active Substance: PEANUT
     Dosage: 0.5 MG FROM IDE, ONCE, LAST DOSE PRIOR TO EVENT ONSET
     Route: 048
     Dates: start: 20221208, end: 20221208
  3. LORATADINE [Concomitant]
     Active Substance: LORATADINE
     Indication: Seasonal allergy
     Dosage: 5MG/5ML, 1X/DAY

REACTIONS (4)
  - Vital functions abnormal [Recovered/Resolved]
  - Cough [Recovered/Resolved]
  - Wheezing [Recovered/Resolved]
  - Urticaria [Recovered/Resolved]

NARRATIVE: CASE EVENT DATE: 20221208
